FAERS Safety Report 17436556 (Version 1)
Quarter: 2020Q1

REPORT INFORMATION
  Report Type: Report from Study
  Country: CA (occurrence: CA)
  Receive Date: 20200219
  Receipt Date: 20200219
  Transmission Date: 20200409
  Serious: Yes (Other)
  Sender: FDA-Public Use
  Company Number: CA-AMGEN-CANSL2020025718

PATIENT
  Age: 76 Year
  Sex: Female

DRUGS (1)
  1. REPATHA [Suspect]
     Active Substance: EVOLOCUMAB
     Indication: ARTERIOSCLEROSIS
     Dosage: 140 MILLIGRAM, Q2WK
     Route: 065

REACTIONS (7)
  - Ageusia [Unknown]
  - Dyspepsia [Unknown]
  - Intestinal haemorrhage [Unknown]
  - Gastroenteritis viral [Unknown]
  - Anosmia [Unknown]
  - Diarrhoea [Unknown]
  - Gastrointestinal pain [Unknown]
